FAERS Safety Report 8687960 (Version 2)
Quarter: 2012Q4

REPORT INFORMATION
  Report Type: 
  Country: GB (occurrence: GB)
  Receive Date: 20120727
  Receipt Date: 20121004
  Transmission Date: 20130627
  Serious: Yes (Other)
  Sender: FDA-Public Use
  Company Number: GB-GLAXOSMITHKLINE-B0815905A

PATIENT
  Age: 67 Year
  Sex: Female
  Weight: 69 kg

DRUGS (10)
  1. ARZERRA [Suspect]
     Indication: CHRONIC LYMPHOCYTIC LEUKAEMIA
     Route: 042
     Dates: start: 20120220
  2. PARACETAMOL [Concomitant]
     Indication: PREMEDICATION
     Route: 048
  3. DEXAMETHASONE [Concomitant]
     Indication: PREMEDICATION
     Route: 042
  4. CHLORPHENAMINE [Concomitant]
     Indication: PREMEDICATION
     Route: 042
  5. HYDROCORTISONE [Concomitant]
     Indication: PREMEDICATION
     Route: 042
  6. ACYCLOVIR [Concomitant]
     Indication: PROPHYLAXIS
     Route: 048
  7. METOCLOPRAMIDE [Concomitant]
     Route: 048
  8. FLUTRIMAZOLE [Concomitant]
     Indication: PROPHYLAXIS
     Dosage: 50MG Per day
     Route: 048
  9. LANSOPRAZOLE [Concomitant]
     Indication: HYPERCHLORHYDRIA
     Dosage: 30MG Per day
     Route: 048
  10. RASBURICASE [Concomitant]
     Indication: PROPHYLAXIS
     Route: 042
     Dates: start: 20120220

REACTIONS (6)
  - Neutropenia [Recovered/Resolved]
  - Hypersensitivity [Recovered/Resolved]
  - Throat irritation [Recovered/Resolved]
  - Dyspnoea [Recovered/Resolved]
  - Tachycardia [Recovered/Resolved]
  - Treatment noncompliance [Unknown]
